FAERS Safety Report 12305826 (Version 1)
Quarter: 2016Q2

REPORT INFORMATION
  Report Type: Spontaneous
  Country: CN (occurrence: CN)
  Receive Date: 20160426
  Receipt Date: 20160426
  Transmission Date: 20160815
  Serious: Yes (Other)
  Sender: FDA-Public Use
  Company Number: CN-JNJFOC-20160420770

PATIENT

DRUGS (4)
  1. THALIDOMIDE [Suspect]
     Active Substance: THALIDOMIDE
     Indication: PLASMA CELL MYELOMA
     Dosage: 100-200 MG, EVERY 3 WEEKS FOR A COURSE
     Route: 048
  2. DEXAMETHASONE. [Suspect]
     Active Substance: DEXAMETHASONE
     Indication: PLASMA CELL MYELOMA
     Dosage: ON DAYS 1,2,4,5,8,9, 11 AND 12, EVERY 3 WEEKS FOR A COURSE.
     Route: 065
  3. DOXORUBICIN HYDROCHLORIDE. [Suspect]
     Active Substance: DOXORUBICIN HYDROCHLORIDE
     Indication: PLASMA CELL MYELOMA
     Dosage: DAY 1-4, EVERY 3 WEEKS FOR A COURSE
     Route: 042
  4. BORTEZOMIB [Suspect]
     Active Substance: BORTEZOMIB
     Indication: PLASMA CELL MYELOMA
     Dosage: ON DAYS 1, 4, 8 AND 11, EVERY 3 WEEKS FOR A COURSE.
     Route: 042

REACTIONS (14)
  - Nausea [Recovered/Resolved]
  - Diarrhoea [Recovered/Resolved]
  - Neuropathy peripheral [Recovered/Resolved]
  - Vomiting [Recovered/Resolved]
  - Decreased appetite [Recovered/Resolved]
  - Constipation [Recovered/Resolved]
  - Herpes zoster [Recovering/Resolving]
  - Thrombocytopenia [Recovered/Resolved]
  - Hypotension [Unknown]
  - Vertigo [Unknown]
  - Leukopenia [Recovered/Resolved]
  - Lung infection [Unknown]
  - Anaemia [Unknown]
  - Fatigue [Unknown]
